FAERS Safety Report 11413942 (Version 8)
Quarter: 2015Q4

REPORT INFORMATION
  Report Type: Spontaneous
  Country: US (occurrence: US)
  Receive Date: 20150824
  Receipt Date: 20151012
  Transmission Date: 20160304
  Serious: Yes (Hospitalization)
  Sender: FDA-Public Use
  Company Number: US-GLAXOSMITHKLINE-US2015120030

PATIENT
  Age: 23 Year
  Sex: Female

DRUGS (12)
  1. LABETALOL [Concomitant]
     Active Substance: LABETALOL\LABETALOL HYDROCHLORIDE
  2. ZOFRAN [Suspect]
     Active Substance: ONDANSETRON HYDROCHLORIDE
     Indication: PAIN
  3. ZOFRAN [Suspect]
     Active Substance: ONDANSETRON HYDROCHLORIDE
     Indication: NAUSEA
     Dosage: UNK, PRN
     Route: 048
     Dates: start: 20140519, end: 201408
  4. BICITRA [Concomitant]
     Active Substance: CITRIC ACID, 1-STEARYL ESTER\SODIUM CITRATE
  5. ONDANSETRON [Suspect]
     Active Substance: ONDANSETRON
     Indication: PRODUCT USED FOR UNKNOWN INDICATION
     Route: 065
  6. MAGNESIUM [Concomitant]
     Active Substance: MAGNESIUM
  7. TORADOL [Concomitant]
     Active Substance: KETOROLAC TROMETHAMINE
  8. AMBIEN [Concomitant]
     Active Substance: ZOLPIDEM TARTRATE
  9. BETAMETHASONE. [Concomitant]
     Active Substance: BETAMETHASONE
  10. APRESOLINE HYDROCHLORIDE [Concomitant]
     Active Substance: HYDRALAZINE HYDROCHLORIDE
  11. ZOFRAN [Suspect]
     Active Substance: ONDANSETRON HYDROCHLORIDE
     Indication: VOMITING IN PREGNANCY
     Dosage: 4 MG, PRN
     Route: 065
  12. FIORICET [Concomitant]
     Active Substance: ACETAMINOPHEN\BUTALBITAL\CAFFEINE

REACTIONS (12)
  - Blood pressure increased [Unknown]
  - Exposure during pregnancy [Unknown]
  - Weight decreased [Recovered/Resolved]
  - Surgery [Unknown]
  - Placental hypertrophy [Unknown]
  - Bed rest [Unknown]
  - Anaemia [Unknown]
  - Premature baby [Unknown]
  - Gestational hypertension [Unknown]
  - Pre-eclampsia [Unknown]
  - Decreased appetite [Unknown]
  - Adverse event [Unknown]

NARRATIVE: CASE EVENT DATE: 2014
